FAERS Safety Report 23619858 (Version 1)
Quarter: 2024Q1

REPORT INFORMATION
  Report Type: Report from Study
  Country: US (occurrence: US)
  Receive Date: 20240312
  Receipt Date: 20240312
  Transmission Date: 20240409
  Serious: Yes (Hospitalization)
  Sender: FDA-Public Use
  Company Number: US-DECIPHERA PHARMACEUTICALS LLC-2024US000209

PATIENT
  Age: 68 Year
  Sex: Female

DRUGS (1)
  1. QINLOCK [Suspect]
     Active Substance: RIPRETINIB
     Indication: Malignant connective tissue neoplasm
     Dosage: 50 MILLIGRAM, QD
     Route: 048
     Dates: start: 20240209, end: 202402

REACTIONS (5)
  - Pain [Unknown]
  - Hypoaesthesia [Unknown]
  - Gait disturbance [Unknown]
  - Muscle spasms [Unknown]
  - Underdose [Unknown]

NARRATIVE: CASE EVENT DATE: 20240209
